FAERS Safety Report 23281891 (Version 1)
Quarter: 2023Q4

REPORT INFORMATION
  Report Type: Spontaneous
  Country: US (occurrence: US)
  Receive Date: 20231211
  Receipt Date: 20231211
  Transmission Date: 20240109
  Serious: No
  Sender: FDA-Public Use
  Company Number: US-JNJFOC-20230900770

PATIENT
  Age: 3 Decade
  Sex: Female

DRUGS (3)
  1. TYLENOL REGULAR STRENGTH [Suspect]
     Active Substance: ACETAMINOPHEN
     Indication: Product used for unknown indication
     Route: 065
     Dates: start: 199506, end: 199510
  2. TYLENOL [Suspect]
     Active Substance: ACETAMINOPHEN
     Indication: Headache
     Dosage: 2-3 TIMES PER WEEK, SECOND AND THIRD TRIMESTER
     Route: 048
     Dates: start: 199506, end: 199510
  3. IRON [Concomitant]
     Active Substance: IRON
     Indication: Pregnancy
     Dosage: DAILY, UNKNOWN DOSE
     Route: 065

REACTIONS (1)
  - Exposure during pregnancy [Unknown]

NARRATIVE: CASE EVENT DATE: 19950601
